FAERS Safety Report 4387113-8 (Version None)
Quarter: 2004Q2

REPORT INFORMATION
  Report Type: 
  Country: None (occurrence: None)
  Receive Date: 20040630
  Receipt Date: 20040310
  Transmission Date: 20050107
  Serious: No
  Sender: FDA-Public Use
  Company Number: US-GLAXOSMITHKLINE-A0502149A

PATIENT
  Age: 67 Year
  Sex: Male

DRUGS (18)
  1. ADVAIR HFA [Suspect]
     Dosage: 1PUFF TWICE PER DAY
     Route: 055
  2. NORVASC [Concomitant]
  3. LISINOPRIL [Concomitant]
  4. PRILOSEC [Concomitant]
  5. METFORMIN [Concomitant]
  6. ZOCOR [Concomitant]
  7. COMBIVENT [Concomitant]
  8. ALBUTEROL [Concomitant]
  9. ALLEGRA [Concomitant]
  10. ASTELIN [Concomitant]
  11. ALBUTEROL [Concomitant]
  12. TIMOPTIC [Concomitant]
  13. ALPHAGAN [Concomitant]
  14. LUMIGAN [Concomitant]
  15. TRUSOPT [Concomitant]
  16. ASPIRIN [Concomitant]
  17. VITAMIN B + C COMPLEX [Concomitant]
  18. VITAMIN E [Concomitant]

REACTIONS (2)
  - DYSPNOEA [None]
  - PHARMACEUTICAL PRODUCT COMPLAINT [None]
